FAERS Safety Report 7305056 (Version 7)
Quarter: 2014Q2

REPORT INFORMATION
  Report Type: Spontaneous
  Country: US (occurrence: US)
  Receive Date: 20100304
  Receipt Date: 20140422
  Transmission Date: 20141212
  Serious: Yes (Hospitalization)
  Sender: FDA-Public Use
  Company Number: US-ALEXION-A201000220

PATIENT
  Age: 51 Year
  Sex: Male

DRUGS (13)
  1. SOLIRIS 300MG [Suspect]
     Indication: PAROXYSMAL NOCTURNAL HAEMOGLOBINURIA
     Dosage: 600 MG, QW
     Route: 042
     Dates: start: 20070521, end: 20070611
  2. SOLIRIS 300MG [Suspect]
     Dosage: 900 MG, Q2W
     Route: 042
     Dates: start: 20070618
  3. SOLIRIS 300MG [Suspect]
     Dosage: 900 MG, Q12D
     Route: 042
  4. SOLIRIS 300MG [Suspect]
     Dosage: 1200 MG, Q14D
     Route: 042
  5. OMEPRAZOLE [Concomitant]
     Dosage: 40 MG, QD
  6. FOLIC ACID [Concomitant]
     Dosage: 1 MG, QD
  7. VALERIAN ROOT                      /01561603/ [Concomitant]
  8. K-LOR [Concomitant]
     Dosage: 10 MEQ 3 TABLETS
  9. SINGULAIR                          /01362601/ [Concomitant]
     Dosage: 10 MG, AT BEDTIME
     Route: 048
  10. B12 [Concomitant]
     Dosage: 500 MCG X 2
  11. ZANTAC                             /00550802/ [Concomitant]
  12. PROVENTIL                          /00139501/ [Concomitant]
     Dosage: 4 PUFFS
  13. CALCITROL                          /00508501/ [Concomitant]
     Dosage: 0.25 MCG QOD

REACTIONS (16)
  - Chest discomfort [Recovered/Resolved]
  - Hypokalaemia [Unknown]
  - Renal failure [Unknown]
  - Hepatitis [Unknown]
  - Pulmonary hypertension [None]
  - Malaise [Unknown]
  - Asthenia [Recovered/Resolved]
  - Presyncope [Recovered/Resolved]
  - Neuropathy peripheral [Unknown]
  - Muscular weakness [Recovered/Resolved]
  - Laboratory test abnormal [Unknown]
  - Dyspnoea [Unknown]
  - Fall [Unknown]
  - Hyperhidrosis [Unknown]
  - Hypoaesthesia [Recovered/Resolved]
  - Dizziness [Recovered/Resolved]
